FAERS Safety Report 5730026-7 (Version None)
Quarter: 2008Q2

REPORT INFORMATION
  Report Type: 
  Country: None (occurrence: None)
  Receive Date: 20080507
  Receipt Date: 20080430
  Transmission Date: 20081010
  Serious: Yes (Death)
  Sender: FDA-Public Use
  Company Number: US-JNJFOC-20050201556

PATIENT
  Sex: Male
  Weight: 54.43 kg

DRUGS (4)
  1. DURAGESIC-100 [Suspect]
     Indication: PAIN
     Route: 062
  2. MORPHINE [Suspect]
     Indication: PAIN
     Route: 065
  3. ROXANOL [Concomitant]
     Indication: CANCER PAIN
     Dosage: START DATE: MAR-2002
     Route: 065
  4. HYDROCODONE BITARTRATE [Concomitant]
     Indication: CANCER PAIN
     Dosage: START DATE: MAR-2002
     Route: 065

REACTIONS (5)
  - COMA [None]
  - MALIGNANT NEOPLASM PROGRESSION [None]
  - NON-SMALL CELL LUNG CANCER STAGE IV [None]
  - OVERDOSE [None]
  - WRONG TECHNIQUE IN DRUG USAGE PROCESS [None]
